FAERS Safety Report 15060243 (Version 1)
Quarter: 2018Q2

REPORT INFORMATION
  Report Type: Spontaneous
  Country: US (occurrence: US)
  Receive Date: 20180625
  Receipt Date: 20180625
  Transmission Date: 20180711
  Serious: Yes (Death)
  Sender: FDA-Public Use
  Company Number: US-SILVERGATE PHARMACEUTICALS, INC.-2018SIL00029

PATIENT

DRUGS (2)
  1. 5-FLUOROURACIL [Suspect]
     Active Substance: FLUOROURACIL
     Indication: KERATOACANTHOMA
  2. METHOTREXATE. [Suspect]
     Active Substance: METHOTREXATE
     Indication: KERATOACANTHOMA

REACTIONS (3)
  - Keratoacanthoma [Fatal]
  - Malignant transformation [Fatal]
  - Skin squamous cell carcinoma metastatic [Fatal]
